FAERS Safety Report 5756850-2 (Version None)
Quarter: 2008Q2

REPORT INFORMATION
  Report Type: 
  Country: None (occurrence: None)
  Receive Date: 20080603
  Receipt Date: 20080527
  Transmission Date: 20081010
  Serious: Yes (Other)
  Sender: FDA-Public Use
  Company Number: US-AMGEN-QUU282381

PATIENT
  Sex: Female

DRUGS (1)
  1. ENBREL [Suspect]
     Indication: RHEUMATOID ARTHRITIS
     Route: 058
     Dates: start: 20030901

REACTIONS (7)
  - FACIAL PALSY [None]
  - HYPERTENSION [None]
  - HYPOAESTHESIA FACIAL [None]
  - MUSCLE TIGHTNESS [None]
  - SENSATION OF PRESSURE [None]
  - SWELLING FACE [None]
  - TENDERNESS [None]
